FAERS Safety Report 10365940 (Version 1)
Quarter: 2014Q3

REPORT INFORMATION
  Report Type: Spontaneous
  Country: US (occurrence: US)
  Receive Date: 20140806
  Receipt Date: 20140806
  Transmission Date: 20150326
  Serious: No
  Sender: FDA-Public Use
  Company Number: US-ASTRAZENECA-2014SE55655

PATIENT
  Age: 56 Year
  Sex: Female
  Weight: 90.7 kg

DRUGS (4)
  1. CRESTOR [Suspect]
     Active Substance: ROSUVASTATIN CALCIUM
     Indication: BLOOD CHOLESTEROL INCREASED
     Route: 048
     Dates: start: 201407, end: 20140725
  2. FERROUS SULFATE [Concomitant]
     Active Substance: FERROUS SULFATE\FERROUS SULFATE, DRIED
     Indication: BLOOD IRON ABNORMAL
     Route: 048
  3. LEVOTHYROXIN [Concomitant]
     Active Substance: LEVOTHYROXINE
     Indication: THYROID DISORDER
     Route: 048
  4. PROTONICS [Concomitant]
     Indication: HELICOBACTER INFECTION
     Dosage: UNKNOWN DAILY
     Route: 048

REACTIONS (2)
  - Dizziness [Not Recovered/Not Resolved]
  - Ear disorder [Not Recovered/Not Resolved]

NARRATIVE: CASE EVENT DATE: 201407
